FAERS Safety Report 7583456-5 (Version None)
Quarter: 2011Q2

REPORT INFORMATION
  Report Type: 
  Country: None (occurrence: None)
  Receive Date: 20110630
  Receipt Date: 20110616
  Transmission Date: 20111010
  Serious: Yes (Death, Other)
  Sender: FDA-Public Use
  Company Number: JP-ROCHE-753667

PATIENT
  Age: 63 Year
  Sex: Female

DRUGS (22)
  1. VORICONAZOLE [Concomitant]
     Route: 048
  2. METHYLPREDNISOLONE [Concomitant]
  3. CEFEPIME HYDROCHLORIDE [Concomitant]
  4. DORIPENEM MONOHYDRATE [Concomitant]
  5. TEICOPLANIN [Concomitant]
  6. BIAPENEM [Concomitant]
  7. FLUDARABINE PHOSPHATE [Concomitant]
     Route: 065
  8. CYCLOSPORINE [Concomitant]
     Route: 065
  9. AMPHOTERICIN B [Concomitant]
  10. CEFTAZIDIME [Concomitant]
  11. IMIPENEM [Concomitant]
  12. MINOCYCLINE HYDROCHLORIDE [Concomitant]
  13. RIBAVIRIN [Concomitant]
  14. MYCAMINE [Concomitant]
  15. CIPROFLOXACIN [Concomitant]
  16. TAZOBACTAM [Concomitant]
  17. GANCICLOVIR SODIUM [Suspect]
     Indication: CYTOMEGALOVIRUS VIRAEMIA
     Dosage: OTHER: INFUSION
     Route: 042
  18. MELPHALAN HYDROCHLORIDE [Concomitant]
  19. VIDARABINE [Concomitant]
     Route: 065
  20. MEROPENEM [Concomitant]
  21. PIPERACILLIN SODIUM [Concomitant]
  22. METHOTREXATE [Concomitant]
     Route: 065

REACTIONS (3)
  - FUNGAEMIA [None]
  - NEUTROPENIA [None]
  - RENAL HAEMORRHAGE [None]
